FAERS Safety Report 6925785-1 (Version None)
Quarter: 2010Q3

REPORT INFORMATION
  Report Type: 
  Country: None (occurrence: None)
  Receive Date: 20100816
  Receipt Date: 20100809
  Transmission Date: 20110219
  Serious: Yes (Other)
  Sender: FDA-Public Use
  Company Number: B0669722A

PATIENT
  Sex: Female

DRUGS (10)
  1. LAMICTAL [Suspect]
     Indication: ANXIETY
     Dosage: 400MG PER DAY
     Route: 065
  2. SEDATIVES [Concomitant]
  3. NEUROLEPTICS [Concomitant]
  4. HALDOL [Concomitant]
     Route: 065
  5. ZYPREXA [Concomitant]
     Route: 065
  6. NOZINAN [Concomitant]
     Route: 065
  7. XANOR [Concomitant]
     Route: 065
  8. XANOR [Concomitant]
     Route: 065
  9. DIAZEPAM [Concomitant]
     Route: 065
  10. OMEPRAZOLE [Concomitant]
     Route: 065

REACTIONS (2)
  - ELEVATED MOOD [None]
  - HYPOMANIA [None]
